FAERS Safety Report 4468899-0 (Version None)
Quarter: 2004Q4

REPORT INFORMATION
  Report Type: 
  Country: None (occurrence: None)
  Receive Date: 20041005
  Receipt Date: 20041005
  Transmission Date: 20050328
  Serious: Yes (Other)
  Sender: FDA-Public Use
  Company Number: None

PATIENT
  Age: 4 Year
  Sex: Female
  Weight: 16.5563 kg

DRUGS (1)
  1. CLARITIN [Suspect]
     Indication: RHINITIS ALLERGIC
     Dosage: 5 MG DAILY ORALLY
     Route: 048

REACTIONS (4)
  - ANGER [None]
  - MOOD ALTERED [None]
  - NIGHTMARE [None]
  - PERSONALITY CHANGE [None]
